FAERS Safety Report 25601513 (Version 2)
Quarter: 2025Q3

REPORT INFORMATION
  Report Type: Spontaneous
  Country: US (occurrence: US)
  Receive Date: 20250724
  Receipt Date: 20250726
  Transmission Date: 20251020
  Serious: No
  Sender: IPSEN BIOPHARMACEUTICALS, INC.
  Company Number: US-IPSEN Group, Research and Development-2025-17749

PATIENT
  Age: 78 Year
  Sex: Female
  Weight: 62 kg

DRUGS (2)
  1. IQIRVO [Suspect]
     Active Substance: ELAFIBRANOR
     Indication: Primary biliary cholangitis
     Dosage: TAKE 1 TABLET (80MG) BY MOUTH ONCE DAILY
     Dates: start: 20250619
  2. IQIRVO [Suspect]
     Active Substance: ELAFIBRANOR
     Dosage: TAKE 1 TABLET (80MG) BY MOUTH ONCE DAILY
     Dates: start: 20250519

REACTIONS (1)
  - Fatigue [Not Recovered/Not Resolved]

NARRATIVE: CASE EVENT DATE: 20250717
